FAERS Safety Report 5005895-9 (Version None)
Quarter: 2006Q2

REPORT INFORMATION
  Report Type: 
  Country: None (occurrence: None)
  Receive Date: 20060517
  Receipt Date: 20060517
  Transmission Date: 20061013
  Serious: Yes (Hospitalization)
  Sender: FDA-Public Use
  Company Number: None

PATIENT
  Age: 65 Year
  Sex: Male

DRUGS (17)
  1. ROSIGLITAZONE [Suspect]
     Indication: DIABETES MELLITUS NON-INSULIN-DEPENDENT
     Dosage: 8 MG QD
     Dates: start: 20050501
  2. FELODIPINE [Concomitant]
  3. CIPRO [Concomitant]
  4. ZOCOR [Concomitant]
  5. ACETAMINOPHEN [Concomitant]
  6. PHENAZOPYRIDINE [Concomitant]
  7. . [Concomitant]
  8. ATENOLOL [Concomitant]
  9. METOLAZONE [Concomitant]
  10. FESO4 [Concomitant]
  11. TERAZOSIN HCL [Concomitant]
  12. LISINOPRIL [Concomitant]
  13. OMEPRAZOLE [Concomitant]
  14. POTASSIUM CHLORIDE [Concomitant]
  15. FUROSEMIDE [Concomitant]
  16. ALLOPURINOL [Concomitant]
  17. METHOCARBAMOL [Concomitant]

REACTIONS (1)
  - OEDEMA [None]
